FAERS Safety Report 10468795 (Version 2)
Quarter: 2014Q4

REPORT INFORMATION
  Report Type: Spontaneous
  Country: FR (occurrence: FR)
  Receive Date: 20140923
  Receipt Date: 20141001
  Transmission Date: 20150528
  Serious: Yes (Death, Life-Threatening)
  Sender: FDA-Public Use
  Company Number: FR-ROCHE-1464444

PATIENT
  Age: 11 Month
  Sex: Male

DRUGS (1)
  1. CYMEVAN [Suspect]
     Active Substance: GANCICLOVIR
     Indication: CYTOMEGALOVIRUS INFECTION
     Route: 042
     Dates: start: 20140810, end: 20140810

REACTIONS (6)
  - Incorrect dose administered [Unknown]
  - Hepatocellular injury [Recovered/Resolved]
  - Overdose [Unknown]
  - Acute kidney injury [Fatal]
  - Anuria [Unknown]
  - Medication error [Unknown]

NARRATIVE: CASE EVENT DATE: 20140810
